FAERS Safety Report 9411489 (Version 1)
Quarter: 2013Q3

REPORT INFORMATION
  Report Type: Spontaneous
  Country: US (occurrence: None)
  Receive Date: 20130718
  Receipt Date: 20130718
  Transmission Date: 20140515
  Serious: No
  Sender: FDA-Public Use
  Company Number: None

PATIENT
  Age: 27 Year
  Sex: Female

DRUGS (2)
  1. MAKENA [Suspect]
     Indication: PREMATURE BABY
     Dosage: 250MG  WEEKLY  INTRAMUSCULAR
     Route: 030
     Dates: start: 20130614, end: 20130628
  2. MAKENA [Suspect]
     Indication: PROPHYLAXIS
     Dosage: 250MG  WEEKLY  INTRAMUSCULAR
     Route: 030
     Dates: start: 20130614, end: 20130628

REACTIONS (6)
  - Nausea [None]
  - Vomiting [None]
  - Insomnia [None]
  - Fatigue [None]
  - Pain [None]
  - Refusal of treatment by patient [None]
